FAERS Safety Report 7443609-3 (Version None)
Quarter: 2011Q2

REPORT INFORMATION
  Report Type: 
  Country: None (occurrence: None)
  Receive Date: 20110428
  Receipt Date: 20110420
  Transmission Date: 20111010
  Serious: Yes (Other)
  Sender: FDA-Public Use
  Company Number: PHHY2011DE34019

PATIENT

DRUGS (2)
  1. TRILEPTAL [Suspect]
  2. ORFIRIL [Suspect]

REACTIONS (1)
  - HALLUCINATION [None]
